FAERS Safety Report 4566376-X (Version None)
Quarter: 2005Q1

REPORT INFORMATION
  Report Type: 
  Country: None (occurrence: None)
  Receive Date: 20050201
  Receipt Date: 20041005
  Transmission Date: 20050727
  Serious: Yes (Other)
  Sender: FDA-Public Use
  Company Number: PHEH2004US10741

PATIENT
  Age: 56 Year
  Sex: Female

DRUGS (8)
  1. FASLODEX [Concomitant]
  2. TAXOL [Concomitant]
  3. HERCEPTIN [Concomitant]
  4. TAGAMET [Concomitant]
  5. DIPHENHYDRAMINE HCL [Concomitant]
  6. DEXAMETHASONE [Concomitant]
  7. LASIX [Concomitant]
  8. ZOMETA [Suspect]
     Indication: METASTASES TO BONE
     Dosage: 4 MG Q MONTH
     Dates: start: 20020328, end: 20040916

REACTIONS (6)
  - BONE DISORDER [None]
  - BONE OPERATION [None]
  - HYPOTHYROIDISM [None]
  - OSTEONECROSIS [None]
  - TOOTH EXTRACTION [None]
  - WOUND DEBRIDEMENT [None]
